FAERS Safety Report 8262718-2 (Version None)
Quarter: 2012Q2

REPORT INFORMATION
  Report Type: 
  Country: None (occurrence: None)
  Receive Date: 20120405
  Receipt Date: 20120323
  Transmission Date: 20120825
  Serious: Yes (Hospitalization)
  Sender: FDA-Public Use
  Company Number: DE-CELGENEUS-062-21660-12031362

PATIENT
  Age: 78 Year
  Sex: Female
  Weight: 76 kg

DRUGS (4)
  1. CAPECITABINE [Suspect]
     Dosage: 3500 MILLIGRAM
     Route: 048
     Dates: start: 20120223, end: 20120301
  2. DIPYRONE TAB [Concomitant]
     Indication: ABDOMINAL PAIN LOWER
     Dosage: 2.5 GRAM
     Route: 065
     Dates: start: 20120307, end: 20120301
  3. ABRAXANE [Suspect]
     Route: 041
     Dates: start: 20120223, end: 20120301
  4. BISOPROLOL FUMARATE [Concomitant]
     Route: 065

REACTIONS (2)
  - ABDOMINAL PAIN LOWER [None]
  - GENERAL PHYSICAL HEALTH DETERIORATION [None]
